FAERS Safety Report 9250471 (Version 1)
Quarter: 2013Q2

REPORT INFORMATION
  Report Type: Spontaneous
  Country: US (occurrence: US)
  Receive Date: 20130424
  Receipt Date: 20130424
  Transmission Date: 20140414
  Serious: No
  Sender: FDA-Public Use
  Company Number: US-009507513-1304USA012826

PATIENT
  Sex: Female

DRUGS (1)
  1. NUVARING [Suspect]
     Indication: CONTRACEPTION
     Dosage: UNK, .015/.0120
     Route: 067
     Dates: start: 2005, end: 2005

REACTIONS (7)
  - Feeling abnormal [Unknown]
  - Post-traumatic stress disorder [Unknown]
  - Depression [Unknown]
  - Headache [Unknown]
  - Flushing [Unknown]
  - Hot flush [Unknown]
  - Mood swings [Unknown]
